FAERS Safety Report 24601801 (Version 2)
Quarter: 2024Q4

REPORT INFORMATION
  Report Type: Spontaneous
  Country: CZ (occurrence: CZ)
  Receive Date: 20241111
  Receipt Date: 20241121
  Transmission Date: 20250115
  Serious: Yes (Life-Threatening, Hospitalization, Other)
  Sender: JUBILANT
  Company Number: None

PATIENT
  Age: 67 Year
  Sex: Female
  Weight: 67 kg

DRUGS (5)
  1. OLANZAPINE [Suspect]
     Active Substance: OLANZAPINE
     Indication: Antipsychotic therapy
     Dosage: 5 MG,  UNK (0-1-0-1)
     Route: 065
  2. TIAPRIDE [Suspect]
     Active Substance: TIAPRIDE
     Indication: Antipsychotic therapy
     Dosage: 200 MG, TOTAL ((SINGLE APPLICATION))
     Route: 048
  3. MELPERONE [Suspect]
     Active Substance: MELPERONE
     Indication: Antipsychotic therapy
     Dosage: 1-1-1-2, 25 MG , EVERY 6 HOURS
     Route: 065
  4. BETAXOLOL [Concomitant]
     Active Substance: BETAXOLOL
     Indication: Product used for unknown indication
     Dosage: UNK,  UNK
     Route: 065
  5. DIOSMIN\HESPERIDIN [Concomitant]
     Active Substance: DIOSMIN\HESPERIDIN
     Indication: Product used for unknown indication
     Dosage: UNK,  UNK
     Route: 065

REACTIONS (4)
  - Generalised tonic-clonic seizure [Recovered/Resolved]
  - Neuroleptic malignant syndrome [Recovered/Resolved]
  - Myoglobin blood increased [Recovered/Resolved]
  - Hypokalaemia [Recovered/Resolved]
